FAERS Safety Report 11333941 (Version 6)
Quarter: 2015Q4

REPORT INFORMATION
  Report Type: Spontaneous
  Country: US (occurrence: US)
  Receive Date: 20150803
  Receipt Date: 20151118
  Transmission Date: 20160304
  Serious: No
  Sender: FDA-Public Use
  Company Number: US-PFIZER INC-2015258031

PATIENT
  Age: 81 Year
  Sex: Male
  Weight: 100 kg

DRUGS (5)
  1. VIAGRA [Suspect]
     Active Substance: SILDENAFIL CITRATE
     Dosage: 100 MG, 50 MG 2 PILLS BY MOUTH 1 HOUR AND 10MIN BEFORE THE FACT
     Route: 048
     Dates: start: 20150806
  2. TRIMIX [Concomitant]
     Active Substance: ALPROSTADIL\PAPAVERINE\PHENTOLAMINE
     Indication: ERECTILE DYSFUNCTION
     Dosage: 1 ML, AS NEEDED
  3. SIMVASTATIN. [Concomitant]
     Active Substance: SIMVASTATIN
     Indication: BLOOD CHOLESTEROL INCREASED
     Dosage: 40 MG, 1X/DAY
     Route: 048
  4. VIAGRA [Suspect]
     Active Substance: SILDENAFIL CITRATE
     Indication: ERECTILE DYSFUNCTION
     Dosage: 50 MG, SINGLE
     Route: 048
     Dates: start: 20150726
  5. LISINOPRIL. [Concomitant]
     Active Substance: LISINOPRIL
     Indication: HYPERTENSION
     Dosage: 10 MG, 1X/DAY
     Route: 048

REACTIONS (3)
  - Drug effect delayed [Unknown]
  - Drug ineffective [Unknown]
  - Drug effect incomplete [Not Recovered/Not Resolved]

NARRATIVE: CASE EVENT DATE: 20150726
